FAERS Safety Report 20723299 (Version 2)
Quarter: 2022Q3

REPORT INFORMATION
  Report Type: Spontaneous
  Country: US (occurrence: US)
  Receive Date: 20220419
  Receipt Date: 20220903
  Transmission Date: 20221027
  Serious: Yes (Other)
  Sender: FDA-Public Use
  Company Number: US-AUROBINDO-AUR-APL-2022-012812

PATIENT
  Sex: Male
  Weight: 74.83 kg

DRUGS (1)
  1. HYDROCHLOROTHIAZIDE\QUINAPRIL HYDROCHLORIDE [Suspect]
     Active Substance: HYDROCHLOROTHIAZIDE\QUINAPRIL HYDROCHLORIDE
     Indication: Hypertension
     Dosage: 1 DOSAGE FORM, ONCE A DAY (10/12.5 MG ONCE TABLET))
     Route: 048

REACTIONS (1)
  - Prostate cancer [Recovered/Resolved]

NARRATIVE: CASE EVENT DATE: 20150101
